FAERS Safety Report 4565354-4 (Version None)
Quarter: 2005Q1

REPORT INFORMATION
  Report Type: 
  Country: None (occurrence: None)
  Receive Date: 20050125
  Receipt Date: 20050125
  Transmission Date: 20050727
  Serious: Yes (Other)
  Sender: FDA-Public Use
  Company Number: None

PATIENT
  Age: 53 Year
  Sex: Female
  Weight: 92.53 kg

DRUGS (1)
  1. DIVALPROEX ER    500MG [Suspect]
     Dosage: 1500MG  QD  ORAL
     Route: 048

REACTIONS (2)
  - AMMONIA INCREASED [None]
  - LIVER FUNCTION TEST ABNORMAL [None]
